FAERS Safety Report 18520290 (Version 2)
Quarter: 2020Q4

REPORT INFORMATION
  Report Type: Report from Study
  Country: None (occurrence: US)
  Receive Date: 20201119
  Receipt Date: 20201124
  Transmission Date: 20210114
  Serious: Yes (Hospitalization)
  Sender: FDA-Public Use
  Company Number: US-ABBVIE-20K-163-3579869-00

PATIENT
  Age: 70 Year
  Sex: Female
  Weight: 65.83 kg

DRUGS (1)
  1. HUMIRA [Suspect]
     Active Substance: ADALIMUMAB
     Indication: CROHN^S DISEASE
     Route: 058
     Dates: start: 2007

REACTIONS (6)
  - Pain [Recovered/Resolved]
  - Chills [Unknown]
  - Viral sinusitis [Unknown]
  - Gastrointestinal viral infection [Unknown]
  - Adverse food reaction [Unknown]
  - Pain [Unknown]

NARRATIVE: CASE EVENT DATE: 202006
